FAERS Safety Report 5515586-3 (Version None)
Quarter: 2007Q4

REPORT INFORMATION
  Report Type: 
  Country: None (occurrence: None)
  Receive Date: 20071113
  Receipt Date: 20070615
  Transmission Date: 20080405
  Serious: No
  Sender: FDA-Public Use
  Company Number: A0656947A

PATIENT
  Age: 63 Year
  Sex: Female

DRUGS (6)
  1. COREG [Suspect]
     Indication: HYPERTENSION
     Dosage: 25MG TWICE PER DAY
     Route: 048
     Dates: start: 20050401
  2. TIAZAC [Concomitant]
  3. ATACAND [Concomitant]
  4. XANAX [Concomitant]
  5. VITAMINS [Concomitant]
  6. CALCIUM [Concomitant]

REACTIONS (7)
  - ABNORMAL DREAMS [None]
  - BLISTER [None]
  - DRUG INTERACTION [None]
  - FEELING COLD [None]
  - OEDEMA PERIPHERAL [None]
  - PARAESTHESIA [None]
  - WEIGHT INCREASED [None]
